FAERS Safety Report 5836127-7 (Version None)
Quarter: 2008Q3

REPORT INFORMATION
  Report Type: 
  Country: None (occurrence: None)
  Receive Date: 20080805
  Receipt Date: 20080721
  Transmission Date: 20090109
  Serious: Yes (Life-Threatening, Other)
  Sender: FDA-Public Use
  Company Number: 2008000501

PATIENT
  Age: 61 Year
  Sex: Female

DRUGS (2)
  1. ERLOTINIB (ERLOTINIB HCL) (TABLET) (ERLOTINIB HCL) [Suspect]
     Indication: LUNG ADENOCARCINOMA
     Dosage: 150 MG, QD; ORAL
     Route: 048
     Dates: start: 20080206, end: 20080206
  2. OXYCONTIN [Concomitant]

REACTIONS (6)
  - ALANINE AMINOTRANSFERASE INCREASED [None]
  - ASPARTATE AMINOTRANSFERASE INCREASED [None]
  - DISEASE PROGRESSION [None]
  - HYPERCREATININAEMIA [None]
  - HYPOXIA [None]
  - VIRAL INFECTION [None]
